FAERS Safety Report 7272735 (Version 5)
Quarter: 2013Q4

REPORT INFORMATION
  Report Type: Spontaneous
  Country: US (occurrence: US)
  Receive Date: 20100208
  Receipt Date: 20131111
  Transmission Date: 20140711
  Serious: Yes (Other)
  Sender: FDA-Public Use
  Company Number: US-BAYER-201012996NA

PATIENT
  Age: 21 Year
  Sex: Female
  Weight: 119 kg

DRUGS (17)
  1. YAZ [Suspect]
     Indication: MENTAL DISORDER
     Dosage: UNK UNK, QD
     Route: 048
     Dates: start: 2005, end: 200910
  2. YAZ [Suspect]
     Indication: ORAL CONTRACEPTION
  3. ACTOPLUS MET [Concomitant]
  4. ZOLPIDEM [Concomitant]
  5. CITALOPRAM HYDROBROMIDE [Concomitant]
  6. SULFAMETHOXAZOLE W/TRIMETHOPRIM [Concomitant]
  7. CLINDAMYCIN [Concomitant]
  8. NAPROXEN [Concomitant]
  9. LACTOBACILLUS ACIDOPHILUS [Concomitant]
  10. CLOTRIMAZOL [Concomitant]
  11. TERCONAZOLE [Concomitant]
  12. METFORMIN [Concomitant]
  13. CIPROFLOXACIN [Concomitant]
  14. FLUCONAZOLE [Concomitant]
  15. PHENAZOPYRIDINE [Concomitant]
  16. GLUCOPHAGE [Concomitant]
  17. MINOCYCLINE [Concomitant]

REACTIONS (10)
  - Cholecystitis chronic [None]
  - Abdominal pain upper [None]
  - Nausea [None]
  - Vomiting [None]
  - Diarrhoea [None]
  - Gallbladder cholesterolosis [None]
  - Mental disorder [None]
  - Abdominal distension [None]
  - Emotional distress [None]
  - Anhedonia [None]
